FAERS Safety Report 25847248 (Version 1)
Quarter: 2025Q3

REPORT INFORMATION
  Report Type: Report from Study
  Country: US (occurrence: US)
  Receive Date: 20250925
  Receipt Date: 20250925
  Transmission Date: 20251020
  Serious: Yes (Hospitalization, Other)
  Sender: UCB
  Company Number: US-UCBSA-2025058699

PATIENT
  Sex: Male

DRUGS (1)
  1. BIMEKIZUMAB [Suspect]
     Active Substance: BIMEKIZUMAB
     Indication: Hidradenitis
     Route: 058
     Dates: start: 20250101, end: 202504

REACTIONS (6)
  - Staphylococcal infection [Recovered/Resolved]
  - Arthritis infective [Recovered/Resolved]
  - Arthroscopy [Recovered/Resolved]
  - Eye infection [Recovered/Resolved]
  - Ear infection [Recovered/Resolved]
  - Decreased immune responsiveness [Unknown]

NARRATIVE: CASE EVENT DATE: 20250101
